FAERS Safety Report 8236834-5 (Version None)
Quarter: 2012Q1

REPORT INFORMATION
  Report Type: 
  Country: None (occurrence: None)
  Receive Date: 20120327
  Receipt Date: 20120321
  Transmission Date: 20120608
  Serious: Yes (Hospitalization)
  Sender: FDA-Public Use
  Company Number: IT-PFIZER INC-2012075290

PATIENT
  Age: 61 Year
  Sex: Female

DRUGS (5)
  1. ASPIRIN [Concomitant]
     Dosage: UNK
  2. PAROXETINE [Suspect]
     Dosage: 520MG, TOTAL DOSE
     Route: 048
  3. ZOLOFT [Suspect]
     Dosage: 100MG X 15 DOSAGE UNITS
     Route: 048
     Dates: start: 20120307, end: 20120307
  4. LORAZEPAM [Suspect]
     Dosage: 2.5MG X 20 DOSAGE UNITS
     Route: 048
     Dates: start: 20120307, end: 20120307
  5. ZOLPIDEM [Suspect]
     Dosage: 15 DOSAGE UNITS
     Route: 048
     Dates: start: 20120307, end: 20120307

REACTIONS (4)
  - BRADYPHRENIA [None]
  - OVERDOSE [None]
  - SUICIDE ATTEMPT [None]
  - BRADYKINESIA [None]
